FAERS Safety Report 15935701 (Version 1)
Quarter: 2019Q1

REPORT INFORMATION
  Report Type: Report from Study
  Country: KR (occurrence: KR)
  Receive Date: 20190208
  Receipt Date: 20190208
  Transmission Date: 20190417
  Serious: Yes (Other)
  Sender: FDA-Public Use
  Company Number: KR-BRISTOL-MYERS SQUIBB COMPANY-BMS-2018-104066

PATIENT
  Age: 61 Year
  Sex: Male
  Weight: 55 kg

DRUGS (2)
  1. NIVOLUMAB [Suspect]
     Active Substance: NIVOLUMAB
     Indication: PRODUCT USED FOR UNKNOWN INDICATION
     Dosage: 165 MG, Q2WK
     Route: 041
     Dates: start: 20180809, end: 20180809
  2. NIVOLUMAB [Suspect]
     Active Substance: NIVOLUMAB
     Indication: NON-SMALL CELL LUNG CANCER
     Dosage: 153 MG, Q2WK
     Route: 041
     Dates: start: 20171026, end: 20180719

REACTIONS (9)
  - Pericardial effusion [Recovered/Resolved]
  - Cataract [Not Recovered/Not Resolved]
  - Hypoaesthesia [Recovered/Resolved]
  - Amylase increased [Recovered/Resolved]
  - Dyspnoea [Recovered/Resolved]
  - Oedema peripheral [Recovered/Resolved]
  - Eczema [Not Recovered/Not Resolved]
  - Malignant neoplasm progression [Not Recovered/Not Resolved]
  - Aspartate aminotransferase increased [Recovered/Resolved]

NARRATIVE: CASE EVENT DATE: 20171109
